FAERS Safety Report 8155818-9 (Version None)
Quarter: 2012Q1

REPORT INFORMATION
  Report Type: 
  Country: None (occurrence: None)
  Receive Date: 20120222
  Receipt Date: 20120213
  Transmission Date: 20120608
  Serious: Yes (Hospitalization)
  Sender: FDA-Public Use
  Company Number: US-US-EMD SERONO, INC.-7091624

PATIENT
  Sex: Female
  Weight: 54 kg

DRUGS (3)
  1. DEPAKOTE [Concomitant]
     Dates: start: 20080101
  2. STEROIDS [Concomitant]
     Indication: MULTIPLE SCLEROSIS
  3. REBIF [Suspect]
     Indication: MULTIPLE SCLEROSIS
     Route: 058
     Dates: start: 20051212

REACTIONS (6)
  - CELLULITIS [None]
  - GAIT DISTURBANCE [None]
  - FATIGUE [None]
  - GASTROENTERITIS VIRAL [None]
  - URINARY TRACT INFECTION [None]
  - SKIN ULCER [None]
